FAERS Safety Report 26052366 (Version 2)
Quarter: 2025Q4

REPORT INFORMATION
  Report Type: Spontaneous
  Country: BR (occurrence: BR)
  Receive Date: 20251117
  Receipt Date: 20251124
  Transmission Date: 20260117
  Serious: Yes (Hospitalization)
  Sender: TEVA
  Company Number: BR-TEVA-VS-3389597

PATIENT
  Age: 18 Year
  Sex: Male

DRUGS (3)
  1. METHOTREXATE [Suspect]
     Active Substance: METHOTREXATE
     Indication: Acute lymphocytic leukaemia
     Dosage: RECEIVED HIGH DOSE IN CONSOLIDATION PHASE
     Route: 065
     Dates: start: 201810
  2. MERCAPTOPURINE [Suspect]
     Active Substance: MERCAPTOPURINE
     Indication: Acute lymphocytic leukaemia
     Dosage: 6-MERCAPTOPURINE, RECEIVED IN CONSOLIDATION PHASE
     Route: 065
     Dates: start: 201810
  3. LEUCOVORIN [Suspect]
     Active Substance: LEUCOVORIN\LEUCOVORIN CALCIUM
     Indication: Acute lymphocytic leukaemia
     Dosage: RECEIVED IN CONSOLIDATION PHASE
     Route: 065
     Dates: start: 201810

REACTIONS (3)
  - Febrile neutropenia [Recovered/Resolved]
  - Endophthalmitis [Recovered/Resolved]
  - Fusarium infection [Recovered/Resolved]
